FAERS Safety Report 6729639-5 (Version None)
Quarter: 2010Q2

REPORT INFORMATION
  Report Type: 
  Country: None (occurrence: None)
  Receive Date: 20100512
  Receipt Date: 20100503
  Transmission Date: 20101027
  Serious: No
  Sender: FDA-Public Use
  Company Number: 555635

PATIENT
  Age: 39 Year
  Sex: Male
  Weight: 105.1 kg

DRUGS (1)
  1. MORPHINE SUL INJ [Suspect]
     Indication: DRUG USE FOR UNKNOWN INDICATION
     Dosage: 6MG ONE HOUR DOSE LIMIT, 10 MINUTES
     Dates: start: 20100315, end: 20100315

REACTIONS (2)
  - CARDIO-RESPIRATORY ARREST [None]
  - UNRESPONSIVE TO STIMULI [None]
